FAERS Safety Report 8199684-4 (Version None)
Quarter: 2012Q1

REPORT INFORMATION
  Report Type: 
  Country: None (occurrence: None)
  Receive Date: 20120311
  Receipt Date: 20120305
  Transmission Date: 20120608
  Serious: Yes (Life-Threatening, Hospitalization, Other)
  Sender: FDA-Public Use
  Company Number: US-ASTRAZENECA-2012SE14883

PATIENT
  Age: 20222 Day
  Sex: Female
  Weight: 90.7 kg

DRUGS (7)
  1. SEROQUEL [Suspect]
     Route: 048
     Dates: start: 20120201
  2. SEROQUEL [Suspect]
     Route: 048
     Dates: start: 20120129
  3. CLONAZEPAM [Suspect]
     Indication: ANXIETY
  4. SEROQUEL [Suspect]
     Indication: BIPOLAR DISORDER
     Route: 048
     Dates: start: 20110201
  5. LITHIUM CARBONATE [Suspect]
  6. AMBIEN [Suspect]
     Indication: SLEEP DISORDER
  7. EFFEXOR [Suspect]

REACTIONS (6)
  - BALANCE DISORDER [None]
  - SUICIDE ATTEMPT [None]
  - HYPERSOMNIA [None]
  - FATIGUE [None]
  - DRUG DOSE OMISSION [None]
  - EAR INFECTION [None]
